FAERS Safety Report 10378951 (Version 1)
Quarter: 2014Q3

REPORT INFORMATION
  Report Type: Spontaneous
  Country: FR (occurrence: FR)
  Receive Date: 20140812
  Receipt Date: 20140812
  Transmission Date: 20150326
  Serious: Yes (Hospitalization)
  Sender: FDA-Public Use
  Company Number: FR-PFIZER INC-2014220705

PATIENT
  Age: 50 Year
  Sex: Male

DRUGS (8)
  1. HAVLANE [Concomitant]
     Active Substance: LOPRAZOLAM
     Dosage: UNK
  2. CRESTOR [Concomitant]
     Active Substance: ROSUVASTATIN CALCIUM
     Dosage: UNK
  3. TRIATEC [Suspect]
     Active Substance: RAMIPRIL
     Dosage: 2.5 MG, TWICE DAILY
     Route: 048
     Dates: end: 20140624
  4. KARDEGIC [Concomitant]
     Active Substance: ASPIRIN LYSINE
     Dosage: 160 MG, DAILY
  5. PLAVIX [Concomitant]
     Active Substance: CLOPIDOGREL BISULFATE
     Dosage: 75 MG, DAILY
  6. ALPRAZOLAM. [Concomitant]
     Active Substance: ALPRAZOLAM
     Dosage: UNK
  7. COLCHIMAX [Suspect]
     Active Substance: COLCHICINE\DICYCLOMINE HYDROCHLORIDE
     Dosage: UNK
     Route: 048
     Dates: end: 20140624
  8. TEMERIT [Concomitant]
     Active Substance: NEBIVOLOL
     Dosage: 5 MG, 2X/DAY

REACTIONS (3)
  - Dehydration [Recovered/Resolved]
  - Fall [Unknown]
  - Renal failure acute [Recovered/Resolved]

NARRATIVE: CASE EVENT DATE: 20140624
